FAERS Safety Report 14402309 (Version 1)
Quarter: 2018Q1

REPORT INFORMATION
  Report Type: Spontaneous
  Country: NO (occurrence: NO)
  Receive Date: 20180117
  Receipt Date: 20180117
  Transmission Date: 20180509
  Serious: Yes (Death)
  Sender: FDA-Public Use
  Company Number: NO-MYLANLABS-2018M1004331

PATIENT
  Age: 66 Year
  Sex: Female

DRUGS (1)
  1. FURADANTIN [Suspect]
     Active Substance: NITROFURANTOIN
     Indication: PRODUCT USED FOR UNKNOWN INDICATION

REACTIONS (3)
  - Condition aggravated [Unknown]
  - Acute respiratory distress syndrome [Fatal]
  - Headache [Unknown]
